FAERS Safety Report 20848825 (Version 1)
Quarter: 2022Q2

REPORT INFORMATION
  Report Type: Spontaneous
  Country: None (occurrence: US)
  Receive Date: 20220519
  Receipt Date: 20220519
  Transmission Date: 20220721
  Serious: No
  Sender: FDA-Public Use
  Company Number: US-P+L Developments of Newyork Corporation-2128933

PATIENT
  Age: 51 Year
  Sex: Female

DRUGS (1)
  1. LORATADINE [Suspect]
     Active Substance: LORATADINE
     Indication: Cold urticaria
     Route: 048
     Dates: start: 202202, end: 202204

REACTIONS (3)
  - Hypersensitivity [Recovering/Resolving]
  - Sneezing [Recovering/Resolving]
  - Nasal congestion [Recovering/Resolving]
